FAERS Safety Report 13577916 (Version 1)
Quarter: 2017Q2

REPORT INFORMATION
  Report Type: Spontaneous
  Country: US (occurrence: US)
  Receive Date: 20170524
  Receipt Date: 20170524
  Transmission Date: 20170830
  Serious: Yes (Other)
  Sender: FDA-Public Use
  Company Number: US-PFIZER INC-2017218264

PATIENT
  Age: 18 Year
  Sex: Female

DRUGS (2)
  1. METHYLPHENIDATE HYDROCHLORIDE. [Suspect]
     Active Substance: METHYLPHENIDATE HYDROCHLORIDE
     Dosage: 110 MG, UNK
  2. MODAFINIL. [Suspect]
     Active Substance: MODAFINIL
     Dosage: 800 MG, UNK
     Route: 048

REACTIONS (2)
  - Drug use disorder [Unknown]
  - Cardiomyopathy acute [Recovering/Resolving]
